FAERS Safety Report 14174154 (Version 3)
Quarter: 2017Q4

REPORT INFORMATION
  Report Type: Spontaneous
  Country: JP (occurrence: JP)
  Receive Date: 20171109
  Receipt Date: 20171204
  Transmission Date: 20180321
  Serious: Yes (Death, Hospitalization, Other)
  Sender: FDA-Public Use
  Company Number: JP-PFIZER INC-2017481252

PATIENT
  Age: 65 Year
  Sex: Male
  Weight: 62 kg

DRUGS (20)
  1. CAMPTO [Suspect]
     Active Substance: IRINOTECAN
     Dosage: 70 MG, 1X/DAY
     Route: 041
     Dates: start: 20170816, end: 20170816
  2. CAMPTO [Suspect]
     Active Substance: IRINOTECAN
     Dosage: 70 MG, 1X/DAY
     Route: 041
     Dates: start: 20170926, end: 20170926
  3. CISPLATIN. [Suspect]
     Active Substance: CISPLATIN
     Dosage: 70 MG, 1X/DAY
     Route: 041
     Dates: start: 20171024, end: 20171024
  4. DEXART [Concomitant]
     Active Substance: DEXAMETHASONE SODIUM PHOSPHATE
     Dosage: UNK
     Dates: start: 20170714, end: 20171024
  5. CAMPTO [Suspect]
     Active Substance: IRINOTECAN
     Dosage: 70 MG, 1X/DAY
     Route: 041
     Dates: start: 20171003, end: 20171003
  6. CISPLATIN. [Suspect]
     Active Substance: CISPLATIN
     Dosage: 70 MG, 1X/DAY
     Route: 041
     Dates: start: 20170816, end: 20170816
  7. CAMPTO [Suspect]
     Active Substance: IRINOTECAN
     Indication: SMALL CELL LUNG CANCER
     Dosage: 70 MG, 1X/DAY
     Route: 041
     Dates: start: 20170714, end: 20170714
  8. CAMPTO [Suspect]
     Active Substance: IRINOTECAN
     Dosage: 70 MG, 1X/DAY
     Route: 041
     Dates: start: 20170728, end: 20170728
  9. CAMPTO [Suspect]
     Active Substance: IRINOTECAN
     Dosage: 70 MG, 1X/DAY
     Route: 041
     Dates: start: 20170919, end: 20170919
  10. CAMPTO [Suspect]
     Active Substance: IRINOTECAN
     Dosage: 70 MG, 1X/DAY
     Route: 041
     Dates: start: 20170823, end: 20170823
  11. CAMPTO [Suspect]
     Active Substance: IRINOTECAN
     Dosage: 70 MG, 1X/DAY
     Route: 041
     Dates: start: 20170831, end: 20170831
  12. CAMPTO [Suspect]
     Active Substance: IRINOTECAN
     Dosage: 70 MG, 1X/DAY
     Route: 041
     Dates: start: 20171024, end: 20171024
  13. ALOXI [Concomitant]
     Active Substance: PALONOSETRON HYDROCHLORIDE
     Dosage: UNK
     Dates: start: 20170714, end: 20171024
  14. CAMPTO [Suspect]
     Active Substance: IRINOTECAN
     Dosage: 70 MG, 1X/DAY
     Route: 041
     Dates: start: 20170721, end: 20170721
  15. EMEND [Concomitant]
     Active Substance: APREPITANT
     Dosage: UNK
     Dates: start: 20170714, end: 20171026
  16. GRANISETRON [Concomitant]
     Active Substance: GRANISETRON
     Dosage: UNK
     Dates: start: 20170721, end: 20171003
  17. CISPLATIN. [Suspect]
     Active Substance: CISPLATIN
     Indication: SMALL CELL LUNG CANCER
     Dosage: 70 MG, 1X/DAY
     Route: 041
     Dates: start: 20170714, end: 20170714
  18. CISPLATIN. [Suspect]
     Active Substance: CISPLATIN
     Dosage: 70 MG, 1X/DAY
     Route: 041
     Dates: start: 20170919, end: 20170919
  19. DECADRON [Concomitant]
     Active Substance: DEXAMETHASONE
     Dosage: UNK
     Dates: start: 20170715, end: 20171027
  20. SLOW K [Concomitant]
     Active Substance: POTASSIUM CHLORIDE
     Dosage: UNK
     Dates: start: 20170919, end: 20171030

REACTIONS (3)
  - Cardiac failure [Recovered/Resolved]
  - Drug-induced liver injury [Fatal]
  - Hypokalaemia [Recovered/Resolved]

NARRATIVE: CASE EVENT DATE: 20170919
